FAERS Safety Report 6785720-6 (Version None)
Quarter: 2010Q2

REPORT INFORMATION
  Report Type: 
  Country: None (occurrence: None)
  Receive Date: 20100623
  Receipt Date: 20100611
  Transmission Date: 20101027
  Serious: Yes (Other)
  Sender: FDA-Public Use
  Company Number: PHHY2010US38172

PATIENT

DRUGS (2)
  1. GLEEVEC [Suspect]
     Dosage: UNK
  2. TPN [Concomitant]
     Dosage: UNK

REACTIONS (2)
  - POLYP [None]
  - SMALL INTESTINAL RESECTION [None]
